FAERS Safety Report 7484662-0 (Version None)
Quarter: 2011Q2

REPORT INFORMATION
  Report Type: 
  Country: None (occurrence: None)
  Receive Date: 20110517
  Receipt Date: 20101201
  Transmission Date: 20111010
  Serious: Yes (Hospitalization)
  Sender: FDA-Public Use
  Company Number: SG-BAYER-2010-000025

PATIENT
  Age: 53 Year
  Sex: Male

DRUGS (1)
  1. PRIMOVIST [Suspect]
     Indication: NUCLEAR MAGNETIC RESONANCE IMAGING
     Dosage: 10 ML, ONCE
     Route: 042
     Dates: start: 20101130, end: 20101130

REACTIONS (5)
  - NAUSEA [None]
  - CONTRAST MEDIA REACTION [None]
  - DYSPNOEA [None]
  - HYPERHIDROSIS [None]
  - BLOOD PRESSURE DECREASED [None]
